FAERS Safety Report 20037769 (Version 1)
Quarter: 2021Q4

REPORT INFORMATION
  Report Type: Spontaneous
  Country: US (occurrence: US)
  Receive Date: 20211105
  Receipt Date: 20211105
  Transmission Date: 20220304
  Serious: No
  Sender: FDA-Public Use
  Company Number: US-UNITED THERAPEUTICS-UNT-2021-022203

PATIENT
  Sex: Female

DRUGS (2)
  1. REMODULIN [Suspect]
     Active Substance: TREPROSTINIL
     Indication: Pulmonary arterial hypertension
     Dosage: UNK UNK, CONTINUING
     Route: 058
     Dates: start: 20210722
  2. REMODULIN [Suspect]
     Active Substance: TREPROSTINIL
     Dosage: 0.0407 ?G/KG, CONTINUING
     Route: 058
     Dates: start: 2021

REACTIONS (4)
  - Dyspnoea [Unknown]
  - Abdominal distension [Unknown]
  - Urine output decreased [Unknown]
  - Constipation [Recovered/Resolved]

NARRATIVE: CASE EVENT DATE: 20210101
